FAERS Safety Report 23205993 (Version 2)
Quarter: 2025Q4

REPORT INFORMATION
  Report Type: Spontaneous
  Country: US (occurrence: US)
  Receive Date: 20231120
  Receipt Date: 20251224
  Transmission Date: 20260118
  Serious: No
  Sender: SANOFI AVENTIS
  Company Number: US-SA-SAC20231113000277

PATIENT
  Age: 14 Year
  Sex: Female
  Weight: 47 kg

DRUGS (2)
  1. DUPIXENT [Suspect]
     Active Substance: DUPILUMAB
     Indication: Dermatitis atopic
     Dosage: 200 MG, QOW
     Route: 058
  2. DUPIXENT [Suspect]
     Active Substance: DUPILUMAB
     Dosage: 200 MG, Q4W
     Route: 058

REACTIONS (5)
  - COVID-19 [Unknown]
  - Pain [Unknown]
  - Pruritus [Unknown]
  - Injection site pain [Unknown]
  - Off label use [Unknown]

NARRATIVE: CASE EVENT DATE: 20231001
